FAERS Safety Report 9169907 (Version 2)
Quarter: 2013Q2

REPORT INFORMATION
  Report Type: Spontaneous
  Country: US (occurrence: None)
  Receive Date: 20130307
  Receipt Date: 20130402
  Transmission Date: 20140414
  Serious: Yes (Hospitalization, Other)
  Sender: FDA-Public Use
  Company Number: 2013P1002678

PATIENT
  Age: 66 Year
  Sex: Female

DRUGS (3)
  1. INFUMORPH [Suspect]
     Indication: POST LAMINECTOMY SYNDROME
  2. CLONIDINE [Suspect]
     Indication: POST LAMINECTOMY SYNDROME
  3. BUPIVACAINE [Suspect]
     Indication: POST LAMINECTOMY SYNDROME

REACTIONS (5)
  - Nausea [None]
  - Catheter site infection [None]
  - Biliary dilatation [None]
  - Fistula [None]
  - Haemoglobin decreased [None]
